FAERS Safety Report 20977824 (Version 2)
Quarter: 2022Q2

REPORT INFORMATION
  Report Type: Spontaneous
  Country: US (occurrence: US)
  Receive Date: 20220618
  Receipt Date: 20220625
  Transmission Date: 20220721
  Serious: Yes (Life-Threatening, Hospitalization, Other)
  Sender: FDA-Public Use
  Company Number: US-Accord-266460

PATIENT
  Age: 23 Year
  Sex: Male

DRUGS (1)
  1. CLOZAPINE [Suspect]
     Active Substance: CLOZAPINE
     Indication: Bipolar I disorder
     Dosage: AT BEDTIME

REACTIONS (11)
  - Fall [Unknown]
  - Salivary hypersecretion [Unknown]
  - Blood pressure systolic decreased [Recovering/Resolving]
  - Somnolence [Recovered/Resolved]
  - Respiratory depression [Unknown]
  - Treatment noncompliance [Unknown]
  - Off label use [Unknown]
  - Loss of consciousness [Unknown]
  - Drug dose titration not performed [Unknown]
  - Mental status changes [Recovering/Resolving]
  - Oxygen saturation decreased [Recovering/Resolving]
